FAERS Safety Report 24036543 (Version 1)
Quarter: 2024Q3

REPORT INFORMATION
  Report Type: Spontaneous
  Country: IT (occurrence: IT)
  Receive Date: 20240701
  Receipt Date: 20240701
  Transmission Date: 20241017
  Serious: Yes (Hospitalization)
  Sender: MYLAN
  Company Number: None

PATIENT
  Age: 89 Year
  Sex: Female

DRUGS (8)
  1. QUETIAPINE [Interacting]
     Active Substance: QUETIAPINE
     Indication: Agitation
     Dosage: 1 DOSAGE FORM, QD
     Route: 048
     Dates: start: 20240508, end: 20240529
  2. TRAZODONE [Interacting]
     Active Substance: TRAZODONE HYDROCHLORIDE
     Indication: Agitation
     Dosage: QD (TRAZODONE DROPS 15 DROPS PER DAY)
     Route: 048
     Dates: start: 20240508, end: 20240606
  3. CYMBALTA [Concomitant]
     Active Substance: DULOXETINE HYDROCHLORIDE
     Indication: Mixed anxiety and depressive disorder
     Dosage: 60 MILLIGRAM (1 TABLET 60MG AT 8 AM )
     Route: 048
  4. ATENOLOL [Concomitant]
     Active Substance: ATENOLOL
     Indication: Hypertension
     Dosage: 100 MILLIGRAM (1/2 TABLET IN THE EVENING)
     Route: 048
  5. COUMADIN [Concomitant]
     Active Substance: WARFARIN SODIUM
     Indication: Deep vein thrombosis
     Dosage: 5 MILLIGRAM (ACCORDING TO INR. SCHEME )
     Route: 048
  6. CHOLECALCIFEROL [Concomitant]
     Active Substance: CHOLECALCIFEROL
     Indication: Osteoporosis
     Dosage: 10000 INTERNATIONAL UNIT (35 DROPS ON SUNDAY)
     Route: 048
  7. OLMESARTAN MEDOXOMIL [Concomitant]
     Active Substance: OLMESARTAN MEDOXOMIL
     Indication: Hypertension
     Dosage: 20 MILLIGRAM (1/2 TABLET IN THE MORNING)
     Route: 048
  8. STALEVO [Concomitant]
     Active Substance: CARBIDOPA\ENTACAPONE\LEVODOPA
     Indication: Parkinsonism
     Dosage: 100/25/200 MG 9-11-15-18 HOURS
     Route: 048

REACTIONS (2)
  - Sopor [Recovering/Resolving]
  - Drug interaction [Recovering/Resolving]

NARRATIVE: CASE EVENT DATE: 20240529
